FAERS Safety Report 7473274-0 (Version None)
Quarter: 2011Q2

REPORT INFORMATION
  Report Type: 
  Country: None (occurrence: None)
  Receive Date: 20110511
  Receipt Date: 20110420
  Transmission Date: 20111010
  Serious: Yes (Hospitalization)
  Sender: FDA-Public Use
  Company Number: CN-JNJFOC-20110503047

PATIENT
  Age: 24 Year
  Sex: Female

DRUGS (3)
  1. CETIRIZINE HYDROCHLORIDE [Suspect]
     Indication: PAIN OF SKIN
     Route: 048
  2. CETIRIZINE HYDROCHLORIDE [Suspect]
     Indication: SKIN INJURY
     Route: 048
  3. CETIRIZINE HYDROCHLORIDE [Suspect]
     Indication: SWELLING
     Route: 048

REACTIONS (3)
  - TORSADE DE POINTES [None]
  - SYNCOPE [None]
  - TREMOR [None]
